FAERS Safety Report 7837620 (Version 3)
Quarter: 2012Q4

REPORT INFORMATION
  Report Type: 
  Country: US (occurrence: US)
  Receive Date: 20110302
  Receipt Date: 20121019
  Transmission Date: 20130627
  Serious: Yes (Life-Threatening, Hospitalization, Other)
  Sender: FDA-Public Use
  Company Number: US-PFIZER INC-2009266664

PATIENT
  Age: 3 Year
  Sex: Female

DRUGS (13)
  1. DILANTIN [Suspect]
     Indication: CONVULSION
     Dosage: 50 mg, 2x/day
     Route: 048
     Dates: start: 19921024
  2. DILANTIN [Suspect]
     Dosage: 50 mg, UNK
     Route: 048
     Dates: start: 19921025
  3. DILANTIN [Suspect]
     Dosage: 50mg every morning and 75mg every night
     Route: 048
     Dates: start: 199210
  4. DILANTIN [Suspect]
     Dosage: 50 mg, 1x/day
     Route: 048
     Dates: start: 19921103, end: 19921107
  5. DILANTIN [Suspect]
     Dosage: 50mg every morning and 75mg every night
     Route: 048
     Dates: start: 19921108, end: 1992
  6. DILANTIN [Suspect]
     Indication: CONVULSION
     Dosage: 150 mg, UNK
     Route: 042
     Dates: start: 19921025, end: 1992
  7. DILANTIN [Suspect]
     Dosage: 150 mg, UNK
     Route: 042
     Dates: start: 20081025
  8. ISONIAZID [Concomitant]
     Indication: TUBERCULOSIS
     Dosage: 150 mg, every morning
     Route: 048
     Dates: start: 19921024, end: 19921120
  9. RIFAMPIN [Concomitant]
     Indication: TUBERCULOSIS
     Dosage: 300 mg, 1x/day
     Route: 048
     Dates: start: 19921025, end: 19921115
  10. PYRAZINAMIDE [Concomitant]
     Indication: TUBERCULOSIS
     Dosage: 250 mg, 1x/day
     Route: 048
     Dates: start: 19921025, end: 19921115
  11. PREDNISONE [Concomitant]
     Indication: TUBERCULOSIS
     Dosage: 5 mg, 3 tablets every 12 hours
     Route: 048
     Dates: start: 19921025, end: 19921115
  12. KANAMYCIN [Concomitant]
     Indication: TUBERCULOSIS
     Dosage: 150 mg, 0.6 ml every morning
     Route: 042
     Dates: start: 19921025, end: 19921110
  13. HEPARIN [Concomitant]
     Dosage: 10U/ml injection IV, 1 ml every 8 hours
     Route: 042
     Dates: start: 19921025, end: 19921112

REACTIONS (1)
  - Stevens-Johnson syndrome [Unknown]
